FAERS Safety Report 19263876 (Version 1)
Quarter: 2021Q2

REPORT INFORMATION
  Report Type: Other
  Country: US (occurrence: US)
  Receive Date: 20210517
  Receipt Date: 20210517
  Transmission Date: 20210717
  Serious: Yes (Hospitalization)
  Sender: FDA-Public Use
  Company Number: US-ROCHE-2827704

PATIENT
  Age: 65 Year
  Sex: Male
  Weight: 63.56 kg

DRUGS (1)
  1. PULMOZYME [Suspect]
     Active Substance: DORNASE ALFA
     Indication: BRONCHIECTASIS
     Dosage: 2.5MG/2.5ML
     Route: 055
     Dates: start: 202104

REACTIONS (3)
  - Mallory-Weiss syndrome [Recovering/Resolving]
  - Off label use [Unknown]
  - Aphonia [Not Recovered/Not Resolved]

NARRATIVE: CASE EVENT DATE: 202104
